FAERS Safety Report 8925958 (Version 8)
Quarter: 2013Q4

REPORT INFORMATION
  Report Type: Spontaneous
  Country: GB (occurrence: GB)
  Receive Date: 20121126
  Receipt Date: 20131028
  Transmission Date: 20140711
  Serious: Yes (Other)
  Sender: FDA-Public Use
  Company Number: PHFR2012GB006004

PATIENT
  Age: 56 Year
  Sex: Male

DRUGS (3)
  1. CLOZARIL [Suspect]
     Indication: SCHIZOPHRENIA
     Dosage: 325 MG
     Route: 048
     Dates: start: 20030624
  2. RANITIDINE [Concomitant]
     Dosage: 300 MG
     Route: 048
  3. CHLORPROMAZINE [Concomitant]
     Dosage: 50 MG
     Route: 048

REACTIONS (2)
  - Lung neoplasm malignant [Not Recovered/Not Resolved]
  - Haemoglobin decreased [Not Recovered/Not Resolved]
